FAERS Safety Report 12608348 (Version 2)
Quarter: 2016Q3

REPORT INFORMATION
  Report Type: Report from Study
  Country: KR (occurrence: KR)
  Receive Date: 20160729
  Receipt Date: 20160804
  Transmission Date: 20161109
  Serious: Yes (Hospitalization)
  Sender: FDA-Public Use
  Company Number: KR-EISAI MEDICAL RESEARCH-EC-2016-019016

PATIENT
  Age: 56 Year
  Sex: Female
  Weight: 40 kg

DRUGS (10)
  1. MEGACE [Concomitant]
     Active Substance: MEGESTROL ACETATE
  2. PLAVIX [Concomitant]
     Active Substance: CLOPIDOGREL BISULFATE
  3. NAUSEA INJECTION [Concomitant]
  4. PYRIDOXINE [Concomitant]
     Active Substance: PYRIDOXINE
  5. DEPAKINE [Concomitant]
     Active Substance: VALPROATE SODIUM
  6. MUCOPECT TAB [Concomitant]
  7. LEGALON CAP. 140 [Concomitant]
  8. HALAVEN [Suspect]
     Active Substance: ERIBULIN MESYLATE
     Indication: BREAST CANCER
     Route: 041
     Dates: start: 20160524
  9. HARMONILAN SOLUTION [Concomitant]
  10. ENTERON-50 [Concomitant]

REACTIONS (1)
  - Neutropenia [Recovering/Resolving]

NARRATIVE: CASE EVENT DATE: 20160620
